FAERS Safety Report 5526331-X (Version None)
Quarter: 2007Q4

REPORT INFORMATION
  Report Type: 
  Country: None (occurrence: None)
  Receive Date: 20071127
  Receipt Date: 20071116
  Transmission Date: 20080405
  Serious: Yes (Hospitalization, Other)
  Sender: FDA-Public Use
  Company Number: CA-JNJFOC-20061103117

PATIENT
  Sex: Female
  Weight: 82 kg

DRUGS (14)
  1. REMICADE [Suspect]
     Route: 042
  2. REMICADE [Suspect]
     Route: 042
  3. REMICADE [Suspect]
     Route: 042
  4. REMICADE [Suspect]
     Indication: RHEUMATOID ARTHRITIS
     Route: 042
  5. METHOTREXATE [Suspect]
     Indication: DRUG USE FOR UNKNOWN INDICATION
     Route: 048
  6. OXYCODONE HCL [Concomitant]
     Dosage: DOSE: WEVERY DAY OR TWO
  7. RABEPRAZOLE SODIUM [Concomitant]
  8. ANTIBIOTIC [Concomitant]
  9. MAVERAN [Concomitant]
  10. FOLIC ACID [Concomitant]
  11. DIDROCAL [Concomitant]
  12. PREDNISONE TAB [Concomitant]
  13. TYLENOL W/ CODEINE NO. 3 [Concomitant]
     Dosage: 1-2 TABLETS DAILY
  14. METFORMIN HCL [Concomitant]

REACTIONS (2)
  - CARCINOID TUMOUR OF THE STOMACH [None]
  - GASTRIC ULCER [None]
